FAERS Safety Report 21462441 (Version 1)
Quarter: 2022Q4

REPORT INFORMATION
  Report Type: Spontaneous
  Country: US (occurrence: None)
  Receive Date: 20221014
  Receipt Date: 20221014
  Transmission Date: 20230113
  Serious: Yes (Hospitalization)
  Sender: FDA-Public Use
  Company Number: None

PATIENT
  Age: 59 Year
  Sex: Male
  Weight: 88 kg

DRUGS (1)
  1. HEPARIN CALCIUM [Suspect]
     Active Substance: HEPARIN CALCIUM
     Indication: Atrial fibrillation
     Route: 042
     Dates: start: 20220708, end: 20220708

REACTIONS (2)
  - Anaphylactic reaction [None]
  - Hypotension [None]
